FAERS Safety Report 13874289 (Version 1)
Quarter: 2017Q3

REPORT INFORMATION
  Report Type: Other
  Country: None (occurrence: US)
  Receive Date: 20170816
  Receipt Date: 20170816
  Transmission Date: 20171127
  Serious: Yes (Other)
  Sender: FDA-Public Use
  Company Number: US-GUTHY-RENKER LLC-2024720

PATIENT
  Age: 62 Year
  Sex: Female

DRUGS (4)
  1. ANTIBIOTICS, BENADRYL, INHALER [Concomitant]
  2. MEANINGFUL BEAUTY CINDY CRAWFORD SKIN BRIGHTENING DECOLLETE AND NECK TREATMENT SPF 15 [Suspect]
     Active Substance: AVOBENZONE\OCTINOXATE\OCTISALATE\OXYBENZONE
     Indication: PROPHYLAXIS AGAINST SOLAR RADIATION
     Route: 061
     Dates: start: 20170714, end: 20170807
  3. MEANINGFUL BEAUTY DARK SPOT CORRECTING TREATMENT [Suspect]
     Active Substance: HYDROQUINONE
     Route: 061
     Dates: start: 20170714, end: 20170807
  4. MEANINGFUL BEAUTY CINDY CRAWFORD ANTIOXIDANT SPF 20 UVA/UVB [Suspect]
     Active Substance: AVOBENZONE\OCTINOXATE\OCTISALATE\OXYBENZONE
     Route: 061
     Dates: start: 20170714, end: 20170807

REACTIONS (3)
  - Dyspnoea [Recovering/Resolving]
  - Eye irritation [None]
  - Peripheral swelling [None]

NARRATIVE: CASE EVENT DATE: 20170807
